FAERS Safety Report 17549441 (Version 1)
Quarter: 2020Q1

REPORT INFORMATION
  Report Type: Report from Study
  Country: CA (occurrence: CA)
  Receive Date: 20200317
  Receipt Date: 20200317
  Transmission Date: 20200409
  Serious: Yes (Hospitalization)
  Sender: FDA-Public Use
  Company Number: CA-GLAXOSMITHKLINE-CA2020AMR021494

PATIENT
  Sex: Female

DRUGS (1)
  1. MEPOLIZUMAB [Suspect]
     Active Substance: MEPOLIZUMAB
     Indication: ASTHMA
     Dosage: 100 MG, Z(MONTHLY)
     Route: 042
     Dates: start: 20190826

REACTIONS (8)
  - Hospitalisation [Unknown]
  - Dyspnoea [Recovering/Resolving]
  - Wheezing [Recovering/Resolving]
  - Loss of personal independence in daily activities [Recovering/Resolving]
  - Asthma [Unknown]
  - Malaise [Recovering/Resolving]
  - Sleep disorder due to a general medical condition [Recovering/Resolving]
  - Cough [Unknown]
